FAERS Safety Report 13521022 (Version 1)
Quarter: 2017Q2

REPORT INFORMATION
  Report Type: Report from Study
  Country: US (occurrence: US)
  Receive Date: 20170508
  Receipt Date: 20170508
  Transmission Date: 20170830
  Serious: Yes (Other)
  Sender: FDA-Public Use
  Company Number: US-ALEXION-A201704601

PATIENT
  Sex: Female

DRUGS (1)
  1. SOLIRIS [Suspect]
     Active Substance: ECULIZUMAB
     Indication: HAEMOLYTIC URAEMIC SYNDROME
     Route: 042

REACTIONS (8)
  - Hemiparesis [Unknown]
  - Sinusitis [Unknown]
  - Depression [Unknown]
  - Cerebral palsy [Unknown]
  - Pneumonia [Unknown]
  - Fatigue [Unknown]
  - Bronchitis [Unknown]
  - Vomiting [Unknown]
